FAERS Safety Report 7365851-2 (Version None)
Quarter: 2011Q1

REPORT INFORMATION
  Report Type: 
  Country: None (occurrence: None)
  Receive Date: 20110316
  Receipt Date: 20110316
  Transmission Date: 20110831
  Serious: Yes (Life-Threatening)
  Sender: FDA-Public Use
  Company Number: None

PATIENT
  Sex: Female
  Weight: 61.2356 kg

DRUGS (1)
  1. TRAZODONE HCL [Suspect]
     Indication: SLEEP DISORDER
     Dosage: 50 MG NIGHTLY PO
     Route: 048
     Dates: start: 20110223, end: 20110310

REACTIONS (3)
  - SOMNAMBULISM [None]
  - ALCOHOL USE [None]
  - MALAISE [None]
